FAERS Safety Report 10700181 (Version 4)
Quarter: 2015Q2

REPORT INFORMATION
  Report Type: Spontaneous
  Country: US (occurrence: US)
  Receive Date: 20150109
  Receipt Date: 20150427
  Transmission Date: 20150821
  Serious: No
  Sender: FDA-Public Use
  Company Number: US-PFIZER INC-2015004344

PATIENT
  Age: 75 Year
  Sex: Male
  Weight: 100 kg

DRUGS (2)
  1. PREMARIN [Suspect]
     Active Substance: ESTROGENS, CONJUGATED
     Indication: EUSTACHIAN TUBE PATULOUS
     Dosage: ONE SPRAY IN EACH NOSTRIL
     Route: 045
     Dates: start: 20140910, end: 201412
  2. PREMARIN [Suspect]
     Active Substance: ESTROGENS, CONJUGATED
     Indication: SINUS CONGESTION
     Dosage: THREE SPRAYS IN EACH NOSTRIL
     Route: 045
     Dates: end: 20141206

REACTIONS (5)
  - Nipple pain [Not Recovered/Not Resolved]
  - Breast pain [Not Recovered/Not Resolved]
  - Drug ineffective for unapproved indication [Not Recovered/Not Resolved]
  - Incorrect dose administered [Unknown]
  - Breast tenderness [Recovering/Resolving]

NARRATIVE: CASE EVENT DATE: 201409
